FAERS Safety Report 6011809-5 (Version None)
Quarter: 2008Q4

REPORT INFORMATION
  Report Type: 
  Country: None (occurrence: None)
  Receive Date: 20081218
  Receipt Date: 20080822
  Transmission Date: 20090506
  Serious: No
  Sender: FDA-Public Use
  Company Number: US-ABBOTT-08P-163-0472232-00

PATIENT
  Weight: 79.45 kg

DRUGS (2)
  1. MERIDIA [Suspect]
     Indication: EATING DISORDER
     Route: 048
     Dates: start: 20080701
  2. DANNON ACTIIVIA YOGURT [Suspect]
     Indication: DYSPEPSIA
     Route: 048
     Dates: start: 20080818, end: 20080823

REACTIONS (1)
  - HUNGER [None]
